FAERS Safety Report 4967379-3 (Version None)
Quarter: 2006Q2

REPORT INFORMATION
  Report Type: 
  Country: None (occurrence: None)
  Receive Date: 20060407
  Receipt Date: 20060407
  Transmission Date: 20061013
  Serious: Yes (Life-Threatening)
  Sender: FDA-Public Use
  Company Number: None

PATIENT
  Sex: Male
  Weight: 73 kg

DRUGS (4)
  1. GEFITINIB 250 MG [Suspect]
     Dosage: 250 MG PO QD
     Route: 048
     Dates: start: 20041228, end: 20060131
  2. AMBIEN [Concomitant]
  3. CLINDAMYCIN/BENZOYL PEROXIDE [Concomitant]
  4. OXYCODONE [Concomitant]

REACTIONS (1)
  - PULMONARY EMBOLISM [None]
